FAERS Safety Report 9632480 (Version 2)
Quarter: 2014Q1

REPORT INFORMATION
  Report Type: Spontaneous
  Country: FR (occurrence: FR)
  Receive Date: 20131018
  Receipt Date: 20140303
  Transmission Date: 20141002
  Serious: Yes (Hospitalization)
  Sender: FDA-Public Use
  Company Number: FR-BAXTER-2013BAX039939

PATIENT
  Age: 32 Year
  Sex: Female

DRUGS (15)
  1. ENDOXAN 500 MG, POUDRE POUR SOLUTION INJECTABLE [Suspect]
     Indication: PRODUCT USED FOR UNKNOWN INDICATION
     Dosage: 750 MG/M2
     Route: 042
     Dates: start: 20130823, end: 20130823
  2. ENDOXAN 500 MG, POUDRE POUR SOLUTION INJECTABLE [Suspect]
     Dosage: 750 MG/M2
     Route: 042
     Dates: start: 20130906, end: 20130906
  3. ENDOXAN 500 MG, POUDRE POUR SOLUTION INJECTABLE [Suspect]
     Dosage: 750 MG/M2
     Route: 042
     Dates: start: 20130920, end: 20130920
  4. UROMITEXAN 5 G/50 ML, SOLUTION INJECTABLE POUR PERFUSION EN FLACON [Suspect]
     Indication: PRODUCT USED FOR UNKNOWN INDICATION
     Route: 042
     Dates: start: 20130823, end: 20130823
  5. UROMITEXAN 5 G/50 ML, SOLUTION INJECTABLE POUR PERFUSION EN FLACON [Suspect]
     Route: 042
     Dates: start: 20130906, end: 20130906
  6. UROMITEXAN 5 G/50 ML, SOLUTION INJECTABLE POUR PERFUSION EN FLACON [Suspect]
     Route: 042
     Dates: start: 20130920, end: 20130920
  7. ONDANSETRON [Suspect]
     Indication: PRODUCT USED FOR UNKNOWN INDICATION
     Dosage: H0 (1/4 HOUR BEFORE ENDOXAN) THEN AT H4 AND H8
     Route: 048
     Dates: start: 20130823, end: 20130823
  8. ONDANSETRON [Suspect]
     Dosage: H0 (1/4 HOUR BEFORE ENDOXAN) THEN AT H4 AND H8
     Route: 048
     Dates: start: 20130906, end: 20130906
  9. ONDANSETRON [Suspect]
     Dosage: H0 (1/4 HOUR BEFORE ENDOXAN) THEN AT H4 AND H8
     Route: 048
     Dates: start: 20130920, end: 20130920
  10. COUMADINE [Concomitant]
     Indication: PRODUCT USED FOR UNKNOWN INDICATION
     Route: 065
  11. INEXIUM [Concomitant]
     Indication: PRODUCT USED FOR UNKNOWN INDICATION
     Route: 065
  12. BACTRIM [Concomitant]
     Indication: PRODUCT USED FOR UNKNOWN INDICATION
     Route: 065
  13. OROCAL D3 [Concomitant]
     Indication: PRODUCT USED FOR UNKNOWN INDICATION
     Route: 065
  14. RAMIPRIL [Concomitant]
     Indication: PRODUCT USED FOR UNKNOWN INDICATION
     Route: 065
  15. PARACETAMOL [Concomitant]
     Indication: PRODUCT USED FOR UNKNOWN INDICATION
     Route: 065

REACTIONS (3)
  - Pyrexia [Recovered/Resolved]
  - Hepatocellular injury [Recovering/Resolving]
  - Urticaria [Recovered/Resolved]
